FAERS Safety Report 19874837 (Version 2)
Quarter: 2021Q4

REPORT INFORMATION
  Report Type: Report from Study
  Country: US (occurrence: US)
  Receive Date: 20210922
  Receipt Date: 20211109
  Transmission Date: 20220303
  Serious: Yes (Hospitalization)
  Sender: FDA-Public Use
  Company Number: US-ABBVIE-21K-163-4087844-00

PATIENT
  Age: 71 Year
  Sex: Female

DRUGS (13)
  1. CREON [Suspect]
     Active Substance: PANCRELIPASE AMYLASE\PANCRELIPASE LIPASE\PANCRELIPASE PROTEASE
     Indication: Pancreatitis
     Dosage: 1 PER MEAL AND 1 PER SNACK
     Route: 048
     Dates: end: 202107
  2. CREON [Suspect]
     Active Substance: PANCRELIPASE AMYLASE\PANCRELIPASE LIPASE\PANCRELIPASE PROTEASE
     Dosage: 1 PER MEAL AND 1 PER SNACK
     Route: 048
     Dates: start: 202107
  3. LISINOPRIL [Concomitant]
     Active Substance: LISINOPRIL
     Indication: Blood pressure measurement
  4. PANTOPRAZOLE [Concomitant]
     Active Substance: PANTOPRAZOLE
     Indication: Gastritis
  5. MONTELUKAST [Concomitant]
     Active Substance: MONTELUKAST SODIUM
     Indication: Hypersensitivity
  6. PIOGLITAZONE [Concomitant]
     Active Substance: PIOGLITAZONE
     Indication: Diabetes mellitus
  7. CALCIUM [Concomitant]
     Active Substance: CALCIUM
     Indication: Supplementation therapy
  8. MODERNA COVID-19 VACCINE [Concomitant]
     Active Substance: CX-024414
     Indication: COVID-19 immunisation
     Dosage: MODERNA
     Route: 030
     Dates: start: 202102, end: 202102
  9. MODERNA COVID-19 VACCINE [Concomitant]
     Active Substance: CX-024414
     Dosage: MODERNA
     Route: 030
     Dates: start: 202102, end: 202102
  10. MAGNESIUM [Concomitant]
     Active Substance: MAGNESIUM
     Indication: Supplementation therapy
  11. ZINC [Concomitant]
     Active Substance: ZINC
     Indication: Supplementation therapy
  12. VITAMIN D3 [Concomitant]
     Active Substance: CHOLECALCIFEROL
     Indication: Supplementation therapy
  13. COBAMAMIDE [Concomitant]
     Active Substance: COBAMAMIDE
     Indication: Supplementation therapy

REACTIONS (5)
  - Lipase increased [Recovered/Resolved]
  - Diarrhoea [Recovered/Resolved]
  - Pancreatitis [Recovered/Resolved]
  - Gait inability [Not Recovered/Not Resolved]
  - Hip fracture [Unknown]

NARRATIVE: CASE EVENT DATE: 20210701
